FAERS Safety Report 5355892-9 (Version None)
Quarter: 2007Q2

REPORT INFORMATION
  Report Type: 
  Country: None (occurrence: None)
  Receive Date: 20070613
  Receipt Date: 20070604
  Transmission Date: 20071010
  Serious: Yes (Hospitalization)
  Sender: FDA-Public Use
  Company Number: AU-ROCHE-448736

PATIENT
  Age: 47 Year
  Sex: Female
  Weight: 92 kg

DRUGS (20)
  1. CAPECITABINE [Suspect]
     Route: 048
     Dates: start: 20060321
  2. CAPECITABINE [Suspect]
     Route: 048
     Dates: start: 20060626
  3. BEVACIZUMAB [Suspect]
     Dosage: GIVEN ON DAY ONE OF THREE WEEK CYCLE AS PER PROTOCOL.
     Route: 042
     Dates: start: 20060321
  4. BEVACIZUMAB [Suspect]
     Dosage: 7.5 MG/KG GIVEN ON DAY OF THREE WEEK CYCLE AS PER PROTOCOL.
     Route: 042
  5. LIPITOR [Concomitant]
     Indication: HYPERTENSION
     Route: 048
     Dates: end: 20060507
  6. LIPITOR [Concomitant]
     Route: 048
     Dates: start: 20060201
  7. OXYCONTIN [Concomitant]
     Indication: PAIN
     Route: 048
     Dates: start: 20060410, end: 20060417
  8. ENDONE [Concomitant]
     Route: 048
     Dates: start: 20060410
  9. PARACETAMOL [Concomitant]
     Route: 048
     Dates: start: 20060410
  10. METOCLOPRAMIDE [Concomitant]
     Indication: NAUSEA
     Route: 048
     Dates: start: 20060410, end: 20060410
  11. FERROUS SULFATE TAB [Concomitant]
     Route: 048
     Dates: start: 20060410
  12. SLOW-K [Concomitant]
     Dosage: TWO UNITS PER DAY.
     Route: 048
     Dates: start: 20060415, end: 20060418
  13. COLOXYL WITH SENNA [Concomitant]
     Indication: CONSTIPATION
     Dosage: ONE UNIT PER DAY.
     Route: 048
     Dates: start: 20060412, end: 20060413
  14. LACTULOSE [Concomitant]
     Route: 048
     Dates: start: 20060415, end: 20060416
  15. SODIUM CHLORIDE [Concomitant]
     Route: 042
     Dates: start: 20060416, end: 20060416
  16. AUGMENTIN FORTE DUO [Concomitant]
     Route: 048
     Dates: start: 20060416, end: 20060422
  17. ONDANSETRON [Concomitant]
     Route: 030
     Dates: start: 20060410, end: 20060419
  18. TEMAZEPAM [Concomitant]
     Route: 048
     Dates: start: 20060412, end: 20060419
  19. CLEXANE [Concomitant]
     Route: 042
     Dates: start: 20060412, end: 20060416
  20. TIMENTIN [Concomitant]
     Dates: start: 20060410, end: 20060416

REACTIONS (2)
  - INTESTINAL PERFORATION [None]
  - SMALL INTESTINAL OBSTRUCTION [None]
